FAERS Safety Report 4343891-5 (Version None)
Quarter: 2004Q2

REPORT INFORMATION
  Report Type: 
  Country: None (occurrence: None)
  Receive Date: 20040419
  Receipt Date: 20040407
  Transmission Date: 20050107
  Serious: Yes (Hospitalization)
  Sender: FDA-Public Use
  Company Number: 200410218BFR

PATIENT
  Age: 72 Year
  Sex: Male
  Weight: 91 kg

DRUGS (8)
  1. MOXIFLOXACIN HYDROCHLORIDE [Suspect]
     Indication: SUPERINFECTION LUNG
     Dosage: 400 MG, TOTAL DAILY, ORAL
     Route: 048
     Dates: start: 20031204, end: 20031207
  2. MUXOL/FRA/ [Concomitant]
  3. BRONCHODUAL [Concomitant]
  4. ASPEGIC 325 [Concomitant]
  5. HYTACAND [Concomitant]
  6. AMAREL [Concomitant]
  7. GLUCOPHAGE [Concomitant]
  8. FENOFIBRATE [Concomitant]

REACTIONS (12)
  - ABDOMINAL DISTENSION [None]
  - BLOOD FIBRINOGEN INCREASED [None]
  - C-REACTIVE PROTEIN INCREASED [None]
  - INFLAMMATION [None]
  - METAPLASIA [None]
  - MUSCULOSKELETAL STIFFNESS [None]
  - NECK PAIN [None]
  - PAROTID GLAND ENLARGEMENT [None]
  - RED BLOOD CELL SEDIMENTATION RATE INCREASED [None]
  - SPINAL DISORDER [None]
  - TRISMUS [None]
  - WHITE BLOOD CELL COUNT INCREASED [None]
